FAERS Safety Report 21765826 (Version 1)
Quarter: 2022Q4

REPORT INFORMATION
  Report Type: Spontaneous
  Country: US (occurrence: None)
  Receive Date: 20221221
  Receipt Date: 20221221
  Transmission Date: 20230112
  Serious: Yes (Other)
  Sender: FDA-Public Use
  Company Number: None

PATIENT
  Age: 10 Year
  Sex: Male
  Weight: 28.35 kg

DRUGS (2)
  1. ALBUTEROL SULFATE [Suspect]
     Active Substance: ALBUTEROL SULFATE
     Indication: Cough
     Dosage: OTHER QUANTITY : 2 PUFF(S);?FREQUENCY : EVERY 4 HOURS;?
     Route: 055
     Dates: start: 202212, end: 20221221
  2. SMARTY PANTS KIDS GUMMY MULTI-VITAMIN [Concomitant]

REACTIONS (1)
  - Hallucination [None]

NARRATIVE: CASE EVENT DATE: 20121221
